FAERS Safety Report 8778241 (Version 2)
Quarter: 2013Q1

REPORT INFORMATION
  Report Type: Spontaneous
  Country: US (occurrence: US)
  Receive Date: 20120911
  Receipt Date: 20130114
  Transmission Date: 20140127
  Serious: No
  Sender: FDA-Public Use
  Company Number: US-009507513-1209USA002405

PATIENT
  Age: 49 None
  Sex: Female

DRUGS (4)
  1. JANUMET XR [Suspect]
     Indication: DIABETES MELLITUS
     Dosage: ONCE A DAY
     Route: 048
     Dates: start: 20120829
  2. SINGULAIR [Concomitant]
  3. ADVAIR [Concomitant]
  4. OMEPRAZOLE [Concomitant]

REACTIONS (3)
  - Abdominal pain upper [Recovered/Resolved]
  - Diarrhoea [Recovering/Resolving]
  - Wrong technique in drug usage process [Unknown]
